FAERS Safety Report 5779445-3 (Version None)
Quarter: 2008Q2

REPORT INFORMATION
  Report Type: 
  Country: None (occurrence: None)
  Receive Date: 20080619
  Receipt Date: 20080110
  Transmission Date: 20081010
  Serious: No
  Sender: FDA-Public Use
  Company Number: US-ASTRAZENECA-2008UW00718

PATIENT
  Age: 43 Year
  Weight: 148.3 kg

DRUGS (6)
  1. ATACAND [Suspect]
     Indication: HYPERTENSION
     Route: 048
     Dates: start: 20080104
  2. TRAMADOL HCL [Concomitant]
  3. BENADRYL [Concomitant]
  4. MELOXICAM [Concomitant]
  5. LAMICTAL [Concomitant]
  6. ZOLOFT [Concomitant]

REACTIONS (3)
  - BLOOD PRESSURE INCREASED [None]
  - HEADACHE [None]
  - HEART RATE INCREASED [None]
